FAERS Safety Report 6639366-0 (Version None)
Quarter: 2010Q1

REPORT INFORMATION
  Report Type: 
  Country: None (occurrence: None)
  Receive Date: 20100318
  Receipt Date: 20100308
  Transmission Date: 20100710
  Serious: Yes (Hospitalization)
  Sender: FDA-Public Use
  Company Number: GB-BIOGENIDEC-2010BI005385

PATIENT
  Age: 53 Year
  Sex: Female

DRUGS (4)
  1. TYSABRI [Suspect]
     Indication: MULTIPLE SCLEROSIS
     Route: 042
     Dates: start: 20071205
  2. GENTAMICIN [Concomitant]
     Route: 042
  3. AMOXICILLIN [Concomitant]
  4. METOCLOPRAMIDE [Concomitant]

REACTIONS (3)
  - APPENDICITIS PERFORATED [None]
  - GANGRENE [None]
  - GASTROENTERITIS NOROVIRUS [None]
